FAERS Safety Report 4456916-3 (Version None)
Quarter: 2004Q3

REPORT INFORMATION
  Report Type: 
  Country: None (occurrence: None)
  Receive Date: 20040923
  Receipt Date: 20040915
  Transmission Date: 20050211
  Serious: Yes (Hospitalization)
  Sender: FDA-Public Use
  Company Number: JP-ROCHE-380700

PATIENT
  Age: 55 Year
  Sex: Female
  Weight: 50 kg

DRUGS (10)
  1. XELODA [Suspect]
     Dosage: DOSING SCHEDULE: 3 WEEKS ADMIN/1 WEEK REST. DOSAGE WAS SUSPENDED.
     Route: 065
     Dates: start: 20030729, end: 20030804
  2. XELODA [Suspect]
     Route: 065
     Dates: start: 20030826, end: 20030908
  3. AMOBAN [Concomitant]
     Indication: INSOMNIA
     Route: 048
     Dates: end: 20030615
  4. MS CONTIN [Concomitant]
     Indication: CANCER PAIN
     Route: 048
     Dates: end: 20030615
  5. NOVAMIN [Concomitant]
     Route: 048
     Dates: end: 20030615
  6. NAUZELIN [Concomitant]
     Route: 048
     Dates: end: 20030615
  7. MAGNESIUM OXIDE [Concomitant]
     Indication: CONSTIPATION
     Route: 048
     Dates: end: 20030615
  8. VOLTAREN [Concomitant]
     Indication: CANCER PAIN
     Route: 050
     Dates: end: 20030615
  9. MAXIPIME [Concomitant]
     Indication: INFECTION
     Route: 042
     Dates: start: 20030804, end: 20030810
  10. TIENAM [Concomitant]
     Indication: INFECTION
     Route: 042
     Dates: start: 20030811, end: 20030815

REACTIONS (3)
  - BREAST CANCER METASTATIC [None]
  - CELLULITIS [None]
  - MALIGNANT NEOPLASM PROGRESSION [None]
